FAERS Safety Report 26117037 (Version 2)
Quarter: 2025Q4

REPORT INFORMATION
  Report Type: Spontaneous
  Country: US (occurrence: None)
  Receive Date: 20251203
  Receipt Date: 20251216
  Transmission Date: 20260117
  Serious: No
  Sender: INCYTE
  Company Number: US-INCYTE CORPORATION-2025IN013246

PATIENT
  Age: 54 Year
  Weight: 76.644 kg

DRUGS (1)
  1. JAKAFI [Suspect]
     Active Substance: RUXOLITINIB
     Indication: Myeloproliferative neoplasm
     Dosage: 20 MILLIGRAM, BID
     Route: 061

REACTIONS (6)
  - Constipation [Unknown]
  - Flatulence [Unknown]
  - Dizziness [Unknown]
  - Dehydration [Unknown]
  - Labelled drug-food interaction issue [Unknown]
  - Off label use [Unknown]
